FAERS Safety Report 8738796 (Version 5)
Quarter: 2012Q4

REPORT INFORMATION
  Report Type: Report from Study
  Country: JP (occurrence: JP)
  Receive Date: 20120823
  Receipt Date: 20121004
  Transmission Date: 20130627
  Serious: Yes (Hospitalization)
  Sender: FDA-Public Use
  Company Number: JP-B.I. PHARMACEUTICALS,INC./RIDGEFIELD-2012-BP-19229NB

PATIENT
  Age: 71 Year
  Sex: Male
  Weight: 64.6 kg

DRUGS (4)
  1. PRAZAXA [Suspect]
     Indication: THROMBOSIS PROPHYLAXIS
     Dosage: 300 mg
     Route: 048
     Dates: start: 20120427
  2. PREMINENT [Concomitant]
     Route: 048
  3. HALFDIGOXIN [Concomitant]
     Indication: ATRIAL FIBRILLATION
     Dosage: 0.125 mg
     Route: 048
  4. PARIET [Concomitant]
     Dosage: 10 mg
     Route: 048

REACTIONS (2)
  - Oesophageal dysplasia [Unknown]
  - Gastrooesophageal reflux disease [Recovered/Resolved]
